FAERS Safety Report 8193748-7 (Version None)
Quarter: 2012Q1

REPORT INFORMATION
  Report Type: 
  Country: None (occurrence: None)
  Receive Date: 20120308
  Receipt Date: 20120228
  Transmission Date: 20120608
  Serious: Yes (Death)
  Sender: FDA-Public Use
  Company Number: BE-CELGENEUS-013-21880-11081189

PATIENT
  Sex: Female

DRUGS (3)
  1. REVLIMID [Suspect]
     Route: 048
     Dates: start: 20110302, end: 20110421
  2. OMEPRAZOLE [Concomitant]
     Indication: ULCER
     Route: 048
     Dates: start: 20050101, end: 20110421
  3. DEXAMETHASONE [Concomitant]
     Route: 048
     Dates: start: 20090101, end: 20110421

REACTIONS (2)
  - GASTRIC ULCER HAEMORRHAGE [None]
  - FEBRILE NEUTROPENIA [None]
